FAERS Safety Report 19207585 (Version 1)
Quarter: 2021Q2

REPORT INFORMATION
  Report Type: Other
  Country: US (occurrence: US)
  Receive Date: 20210503
  Receipt Date: 20210503
  Transmission Date: 20210717
  Serious: Yes (Hospitalization)
  Sender: FDA-Public Use
  Company Number: US-ROCHE-2822070

PATIENT
  Age: 20 Year
  Sex: Male

DRUGS (2)
  1. DORNASE ALFA. [Concomitant]
     Active Substance: DORNASE ALFA
     Indication: PRODUCT USED FOR UNKNOWN INDICATION
  2. ACTILYSE [Suspect]
     Active Substance: ALTEPLASE
     Indication: TRAUMATIC HAEMOTHORAX
     Dosage: TWICE DAILY INTRAPLEURAL ALTEPLASE
     Route: 034

REACTIONS (3)
  - Tachycardia [Unknown]
  - Haemoglobin decreased [Unknown]
  - Chest pain [Unknown]
